FAERS Safety Report 5566243-9 (Version None)
Quarter: 2007Q4

REPORT INFORMATION
  Report Type: 
  Country: None (occurrence: None)
  Receive Date: 20071213
  Receipt Date: 20071213
  Transmission Date: 20080405
  Serious: Yes (Disabling)
  Sender: FDA-Public Use
  Company Number: None

PATIENT
  Sex: Male
  Weight: 67 kg

DRUGS (37)
  1. GLEEVEC [Suspect]
     Indication: KAPOSI'S SARCOMA
     Dosage: 400MG QD PO
     Route: 048
     Dates: start: 20070207, end: 20070408
  2. SUSTIVA [Concomitant]
  3. TRUVADA [Concomitant]
  4. BIAXIN [Concomitant]
  5. BACTRIM [Concomitant]
  6. OXADRIN [Concomitant]
  7. VALTREX [Concomitant]
  8. DICYCLOMINE [Concomitant]
  9. LEVOTHYROXINE SODIUM [Concomitant]
  10. FOLIC ACID [Concomitant]
  11. ORPHENADRINE CITRATE [Concomitant]
  12. LORAZEPAM [Concomitant]
  13. COMPAZINE [Concomitant]
  14. HYDROXYZINE [Concomitant]
  15. TRIAMCINOLONE [Concomitant]
  16. DIPROPIONATE CREAM [Concomitant]
  17. DESENEX CREAM [Concomitant]
  18. BETAMETHAZONE CREAM [Concomitant]
  19. AMBIEN [Concomitant]
  20. TRIAMCINOCLONE DENTAL PASTE [Concomitant]
  21. ANDROGEL [Concomitant]
  22. NEUPOGEN [Concomitant]
  23. PROCRIT [Concomitant]
  24. LORATADINE [Concomitant]
  25. LOMOTIL [Concomitant]
  26. RANITIDINE HCL [Concomitant]
  27. IBUPROFEN [Concomitant]
  28. TYLENOL [Concomitant]
  29. HYDROQUININONE CREAM [Concomitant]
  30. PENLAC NAIL LAQUER [Concomitant]
  31. CLOBETASOL SOLUTION [Concomitant]
  32. FLOMAX [Concomitant]
  33. ZERTEC [Concomitant]
  34. VITAMIN CAP [Concomitant]
  35. ELOCON [Concomitant]
  36. PAXIL [Concomitant]
  37. NIZO [Concomitant]

REACTIONS (1)
  - NEUTROPENIA [None]
